FAERS Safety Report 5327751-9 (Version None)
Quarter: 2007Q2

REPORT INFORMATION
  Report Type: 
  Country: None (occurrence: None)
  Receive Date: 20070226
  Receipt Date: 20060630
  Transmission Date: 20071010
  Serious: Yes (Hospitalization, Other)
  Sender: FDA-Public Use
  Company Number: DSA_28396_2006

PATIENT
  Age: 71 Year
  Sex: Female

DRUGS (4)
  1. VASOTEC [Suspect]
     Indication: HYPERTENSION
     Dosage: 10 MG BID PO
     Route: 048
     Dates: start: 20060301, end: 20060401
  2. VASOTEC [Suspect]
     Indication: HYPERTENSION
     Dosage: 20 MG BID PO
     Route: 048
     Dates: start: 20060401, end: 20060101
  3. VASOTEC [Suspect]
     Indication: HYPERTENSION
     Dosage: 20 MG QAM PO
     Route: 048
     Dates: start: 20060101
  4. DIOVAN /01219601/ [Concomitant]

REACTIONS (2)
  - DRUG INEFFECTIVE [None]
  - PHARMACEUTICAL PRODUCT COMPLAINT [None]
